FAERS Safety Report 7233890-8 (Version None)
Quarter: 2011Q1

REPORT INFORMATION
  Report Type: 
  Country: None (occurrence: None)
  Receive Date: 20110110
  Receipt Date: 20101226
  Transmission Date: 20110831
  Serious: Yes (Other)
  Sender: FDA-Public Use
  Company Number: 2011SP000512

PATIENT
  Sex: Female

DRUGS (2)
  1. PEG-INTRON [Suspect]
     Indication: HEPATITIS C
     Dates: end: 20100301
  2. RIBAVIRIN [Suspect]
     Indication: HEPATITIS C
     Dates: end: 20100301

REACTIONS (8)
  - METRORRHAGIA [None]
  - DYSPEPSIA [None]
  - FATIGUE [None]
  - BONE DISORDER [None]
  - ANXIETY [None]
  - ILL-DEFINED DISORDER [None]
  - FALL [None]
  - SWELLING [None]
